FAERS Safety Report 19750754 (Version 1)
Quarter: 2021Q3

REPORT INFORMATION
  Report Type: Spontaneous
  Country: US (occurrence: US)
  Receive Date: 20210826
  Receipt Date: 20210826
  Transmission Date: 20211014
  Serious: Yes (Other)
  Sender: FDA-Public Use
  Company Number: US-PFIZER INC-202101058243

PATIENT
  Age: 69 Year
  Sex: Female

DRUGS (1)
  1. IBRANCE [Suspect]
     Active Substance: PALBOCICLIB
     Dosage: 75 MG
     Dates: start: 20201206

REACTIONS (5)
  - Haematidrosis [Unknown]
  - Erythema [Unknown]
  - Arthritis infective [Unknown]
  - Joint swelling [Unknown]
  - Wrist fracture [Unknown]
